FAERS Safety Report 7410784-6 (Version None)
Quarter: 2011Q1

REPORT INFORMATION
  Report Type: 
  Country: None (occurrence: None)
  Receive Date: 20110302
  Receipt Date: 20100820
  Transmission Date: 20110831
  Serious: Yes (Death, Hospitalization, Disabling, Other)
  Sender: FDA-Public Use
  Company Number: 163-21880-10022133

PATIENT
  Age: 81 Year
  Sex: Female

DRUGS (16)
  1. MECLIZINE [Concomitant]
  2. REVLIMID [Suspect]
     Indication: MULTIPLE MYELOMA
     Dosage: TIMES 21 DAYS ON AND 7 DAYS OFF, PO, 15 MG, DAILY FOR 21 DAYS, PO
     Route: 048
     Dates: start: 20090818, end: 20091201
  3. REVLIMID [Suspect]
     Indication: MULTIPLE MYELOMA
     Dosage: TIMES 21 DAYS ON AND 7 DAYS OFF, PO, 15 MG, DAILY FOR 21 DAYS, PO
     Route: 048
     Dates: start: 20100101
  4. SYNTHROID [Concomitant]
  5. PROTONIX [Concomitant]
  6. ZOCOR [Concomitant]
  7. ASPIRIN [Concomitant]
  8. DECADRON [Concomitant]
  9. VITAMIN D [Concomitant]
  10. COUMADIN [Concomitant]
  11. MIRALAX [Concomitant]
  12. PREDNISONE [Concomitant]
  13. LASIX [Concomitant]
  14. ENALAPRIL MALEATE [Concomitant]
  15. DIAZEPAM [Concomitant]
  16. SENNA S (COLOXYL WITH SENNA) [Concomitant]

REACTIONS (7)
  - FATIGUE [None]
  - MULTIPLE MYELOMA [None]
  - OEDEMA PERIPHERAL [None]
  - BALANCE DISORDER [None]
  - DEEP VEIN THROMBOSIS [None]
  - RENAL FAILURE [None]
  - HYPERTENSION [None]
